FAERS Safety Report 9669505 (Version 3)
Quarter: 2013Q4

REPORT INFORMATION
  Report Type: Spontaneous
  Country: IT (occurrence: IT)
  Receive Date: 20131105
  Receipt Date: 20131111
  Transmission Date: 20140711
  Serious: Yes (Death)
  Sender: FDA-Public Use
  Company Number: IT-ASTRAZENECA-2013SE80945

PATIENT
  Age: 25608 Day
  Sex: Male

DRUGS (9)
  1. BRILIQUE [Suspect]
     Route: 048
     Dates: start: 20130101, end: 20130831
  2. CARDIOASPIRIN [Suspect]
     Route: 048
     Dates: start: 20130101, end: 20130831
  3. IVABRADINE [Concomitant]
  4. RAMIPRIL [Concomitant]
  5. FUROSEMIDE [Concomitant]
     Dosage: 25 2 TBL
  6. STATIN [Concomitant]
  7. AMLODIPINE [Concomitant]
  8. GASTROPROTECTION [Concomitant]
  9. INSULIN [Concomitant]

REACTIONS (1)
  - Cerebral haemorrhage [Fatal]
